FAERS Safety Report 21131249 (Version 1)
Quarter: 2022Q3

REPORT INFORMATION
  Report Type: Spontaneous
  Country: US (occurrence: None)
  Receive Date: 20220725
  Receipt Date: 20220725
  Transmission Date: 20221027
  Serious: No
  Sender: FDA-Public Use
  Company Number: None

PATIENT
  Age: 39 Year
  Sex: Female

DRUGS (2)
  1. INFUVITE ADULT MULTIPLE VITAMINS [Suspect]
     Active Substance: ALPHA-TOCOPHEROL ACETATE\ASCORBIC ACID\BIOTIN\CHOLECALCIFEROL\CYANOCOBALAMIN\DEXPANTHENOL\FOLIC ACID
     Dosage: FREQUENCY : ONCE;?
     Route: 041
     Dates: start: 20220723, end: 20220723
  2. VITAMINS [Concomitant]
     Active Substance: VITAMINS
     Dates: start: 20220723, end: 20220723

REACTIONS (5)
  - Infusion site pain [None]
  - Flushing [None]
  - Chest discomfort [None]
  - Dizziness [None]
  - Infusion site pain [None]

NARRATIVE: CASE EVENT DATE: 20220723
